FAERS Safety Report 10137645 (Version 4)
Quarter: 2014Q2

REPORT INFORMATION
  Report Type: Spontaneous
  Country: US (occurrence: US)
  Receive Date: 20140428
  Receipt Date: 20140612
  Transmission Date: 20141212
  Serious: No
  Sender: FDA-Public Use
  Company Number: US-PFIZER INC-2014111790

PATIENT
  Age: 66 Year
  Sex: Male
  Weight: 77.1 kg

DRUGS (7)
  1. SUTENT [Suspect]
     Indication: METASTATIC RENAL CELL CARCINOMA
     Dosage: 50 MG, UNK
     Dates: start: 20140222
  2. CETIRIZINE [Concomitant]
     Dosage: UNK
  3. FINASTERIDE [Concomitant]
     Dosage: UNK
  4. AMLODIPINE [Concomitant]
     Dosage: UNK
  5. TERAZOSIN [Concomitant]
     Dosage: UNK
  6. PERCOCET [Concomitant]
     Indication: PAIN
     Dosage: UNK
  7. AMOXICILLIN [Concomitant]
     Dosage: UNK

REACTIONS (13)
  - Nail pigmentation [Unknown]
  - Peripheral swelling [Unknown]
  - Pain in extremity [Unknown]
  - Rash [Unknown]
  - White blood cell count decreased [Unknown]
  - Joint swelling [Unknown]
  - Arthralgia [Unknown]
  - Stomatitis [Unknown]
  - Skin exfoliation [Unknown]
  - Ageusia [Not Recovered/Not Resolved]
  - Dyspepsia [Unknown]
  - Arthralgia [Unknown]
  - Myalgia [Unknown]
